FAERS Safety Report 10257905 (Version 2)
Quarter: 2015Q2

REPORT INFORMATION
  Report Type: Spontaneous
  Country: US (occurrence: US)
  Receive Date: 20140625
  Receipt Date: 20150506
  Transmission Date: 20150821
  Serious: No
  Sender: FDA-Public Use
  Company Number: US-PFIZER INC-2014169313

PATIENT
  Sex: Female

DRUGS (11)
  1. PERCOCET [Suspect]
     Active Substance: ACETAMINOPHEN\OXYCODONE HYDROCHLORIDE
  2. PROTONIX [Suspect]
     Active Substance: PANTOPRAZOLE SODIUM
     Dosage: UNK
  3. PREDNISONE. [Suspect]
     Active Substance: PREDNISONE
  4. MACROBID [Suspect]
     Active Substance: NITROFURANTOIN\NITROFURANTOIN MONOHYDRATE
  5. EPPY (BORIC ACID\EPINEPHRINE) [Suspect]
     Active Substance: BORIC ACID\EPINEPHRINE
  6. AVAPRO [Suspect]
     Active Substance: IRBESARTAN
  7. MORPHINE SULFATE. [Suspect]
     Active Substance: MORPHINE SULFATE
  8. TENORMIN [Suspect]
     Active Substance: ATENOLOL
  9. NORVASC [Suspect]
     Active Substance: AMLODIPINE BESYLATE
  10. TRAMADOL [Suspect]
     Active Substance: TRAMADOL
  11. ZETIA [Suspect]
     Active Substance: EZETIMIBE

REACTIONS (1)
  - Drug hypersensitivity [Unknown]
